FAERS Safety Report 19355009 (Version 1)
Quarter: 2021Q2

REPORT INFORMATION
  Report Type: Report from Study
  Country: None (occurrence: US)
  Receive Date: 20210602
  Receipt Date: 20210602
  Transmission Date: 20210717
  Serious: Yes (Hospitalization, Other)
  Sender: FDA-Public Use
  Company Number: US-ABBVIE-21K-163-3848372-00

PATIENT
  Age: 36 Year
  Sex: Female
  Weight: 63.56 kg

DRUGS (3)
  1. HUMIRA [Suspect]
     Active Substance: ADALIMUMAB
     Route: 058
     Dates: start: 202105
  2. HUMIRA [Suspect]
     Active Substance: ADALIMUMAB
     Indication: RHEUMATOID ARTHRITIS
     Route: 058
     Dates: start: 200910, end: 20200901
  3. ALPRAZOLAM. [Concomitant]
     Active Substance: ALPRAZOLAM
     Indication: ANXIETY

REACTIONS (12)
  - Osteoarthritis [Recovering/Resolving]
  - Asthenia [Unknown]
  - Bedridden [Unknown]
  - Joint injury [Recovering/Resolving]
  - Cartilage injury [Recovering/Resolving]
  - Rheumatoid arthritis [Recovering/Resolving]
  - Septic shock [Recovered/Resolved]
  - Gait disturbance [Unknown]
  - Pain [Unknown]
  - Drug ineffective [Unknown]
  - Joint effusion [Recovering/Resolving]
  - Medical device site injury [Unknown]

NARRATIVE: CASE EVENT DATE: 201810
